FAERS Safety Report 4688029-X (Version None)
Quarter: 2005Q2

REPORT INFORMATION
  Report Type: 
  Country: None (occurrence: None)
  Receive Date: 20050609
  Receipt Date: 20050527
  Transmission Date: 20051028
  Serious: Yes (Hospitalization)
  Sender: FDA-Public Use
  Company Number: 2005081442

PATIENT
  Age: 56 Year
  Sex: Female
  Weight: 102.0593 kg

DRUGS (8)
  1. BEXTRA [Suspect]
     Indication: ILL-DEFINED DISORDER
     Dosage: 20 MG (20 MG, 1 IN 1 D), ORAL
     Route: 048
     Dates: start: 20040114, end: 20041001
  2. ALL OTHER THERAPEUTIC PRODUCTS (ALL OTHER THERAPEUTIC PRODUCTS) [Concomitant]
  3. PREMPRO [Concomitant]
  4. EFFEXOR XR [Concomitant]
  5. DURAGESIC (FENTANYL) [Concomitant]
  6. LIDODERM (LIDOCAINE) [Concomitant]
  7. ACTIQ [Concomitant]
  8. DESYREL [Concomitant]

REACTIONS (5)
  - BACK PAIN [None]
  - HERNIA REPAIR [None]
  - RASH ERYTHEMATOUS [None]
  - SINUS DISORDER [None]
  - TREATMENT NONCOMPLIANCE [None]
